FAERS Safety Report 10175968 (Version 1)
Quarter: 2014Q2

REPORT INFORMATION
  Report Type: Spontaneous
  Country: GB (occurrence: GB)
  Receive Date: 20140516
  Receipt Date: 20140516
  Transmission Date: 20141212
  Serious: Yes (Other)
  Sender: FDA-Public Use
  Company Number: GB-ACCORD-023571

PATIENT
  Age: 62 Year
  Sex: 0

DRUGS (7)
  1. SIMVASTATIN [Suspect]
     Indication: PRODUCT USED FOR UNKNOWN INDICATION
  2. VENLAFAXINE/VENLAFAXINE HYDROCHLORIDE [Concomitant]
  3. HYDROXOCOBALAMIN/HYDROXOCOBALAMIN ACETATE/HYDROXOCOBALAMIN HYDROCHLORIDE [Concomitant]
  4. LISINOPRIL [Concomitant]
  5. SERTRALINE [Concomitant]
  6. CLOPIDOGREL [Concomitant]
  7. MIRTAZAPINE [Concomitant]

REACTIONS (1)
  - Loss of consciousness [Unknown]
